FAERS Safety Report 9333333 (Version 3)
Quarter: 2013Q3

REPORT INFORMATION
  Report Type: Spontaneous
  Country: IT (occurrence: None)
  Receive Date: 20130604
  Receipt Date: 20130719
  Transmission Date: 20140515
  Serious: Yes (Hospitalization)
  Sender: FDA-Public Use
  Company Number: 2013AP005635

PATIENT
  Age: 33 Year
  Sex: Female

DRUGS (3)
  1. ALPRAZOLAM [Suspect]
     Route: 048
     Dates: start: 20130514, end: 20130514
  2. ZOLPIDEM TARTRATE (ZOLPIDEM TARTRATE) [Suspect]
     Route: 048
     Dates: start: 20130514, end: 20130514
  3. ESTAZOLAM [Suspect]
     Route: 048
     Dates: start: 20130514, end: 20130514

REACTIONS (4)
  - Poverty of speech [None]
  - Sopor [None]
  - Drug abuse [None]
  - Suicide attempt [None]
